FAERS Safety Report 6377357-8 (Version None)
Quarter: 2009Q3

REPORT INFORMATION
  Report Type: 
  Country: None (occurrence: None)
  Receive Date: 20090923
  Receipt Date: 20090923
  Transmission Date: 20100115
  Serious: Yes (Hospitalization)
  Sender: FDA-Public Use
  Company Number: None

PATIENT
  Age: 77 Year
  Sex: Male

DRUGS (3)
  1. ASPIRIN [Suspect]
  2. NAPROXEN [Suspect]
  3. METOPROLOL [Concomitant]

REACTIONS (8)
  - DYSPNOEA [None]
  - EPISTAXIS [None]
  - FATIGUE [None]
  - GASTRIC ULCER [None]
  - HAEMATEMESIS [None]
  - HAEMOGLOBIN DECREASED [None]
  - PRESYNCOPE [None]
  - SYNCOPE [None]
